FAERS Safety Report 8640624 (Version 2)
Quarter: 2012Q4

REPORT INFORMATION
  Report Type: Spontaneous
  Country: None (occurrence: None)
  Receive Date: 20120614
  Receipt Date: 20121004
  Transmission Date: 20130627
  Serious: Yes (Hospitalization)
  Sender: FDA-Public Use
  Company Number: AUR-APL-2012-02587

PATIENT
  Age: 80 Year
  Sex: Male
  Weight: 70 kg

DRUGS (6)
  1. SIMVASTATIN [Suspect]
     Indication: BLOOD CHOLESTEROL INCREASED
     Dosage: 40 MG (40 MG, 1 IN 1 D), ORAL
     Route: 048
     Dates: start: 20120220, end: 20120513
  2. FUSIDIC ACID [Suspect]
     Indication: LOCALISED INFECTION
     Dosage: 500 MG (250 MG, 2 IN 1 D), ORAL
     Route: 048
     Dates: start: 20120413, end: 20120513
  3. CILOSTAZOL [Concomitant]
  4. FLUCLOXACILLIN SODIUM MONOHYDRATE [Concomitant]
  5. NICORANDIL (NICORANDIL) [Concomitant]
  6. OMEPRAZOLE [Concomitant]

REACTIONS (3)
  - LOCALISED INFECTION [None]
  - RHABDOMYOLYSIS [None]
  - DRUG INTERACTION [None]
